FAERS Safety Report 8479533-7 (Version None)
Quarter: 2012Q2

REPORT INFORMATION
  Report Type: 
  Country: None (occurrence: None)
  Receive Date: 20120629
  Receipt Date: 20120620
  Transmission Date: 20120825
  Serious: Yes (Hospitalization)
  Sender: FDA-Public Use
  Company Number: CA-BRISTOL-MYERS SQUIBB COMPANY-16724817

PATIENT
  Age: 26 Year
  Sex: Female

DRUGS (24)
  1. AMPICILLIN [Suspect]
  2. CEPHALEXIN [Suspect]
  3. OLANZAPINE [Suspect]
  4. NICOTINE [Suspect]
     Dosage: FORMULATION: PATCH
  5. SENNA-MINT WAF [Suspect]
  6. DIPHENHYDRAMINE HCL [Suspect]
  7. CLOTRIMAZOLE [Suspect]
  8. METOCLOPRAMIDE [Suspect]
  9. CLONAZEPAM [Suspect]
  10. DOXYLAMINE SUCCINATE [Suspect]
  11. CITALOPRAM HYDROBROMIDE [Suspect]
  12. HYDROMORPHONE HCL [Suspect]
  13. OXYCODONE HCL [Suspect]
  14. ACETAMINOPHEN [Suspect]
  15. CEFAZOLIN [Suspect]
  16. GENTAMICIN [Suspect]
  17. OXAZEPAM [Suspect]
  18. PROPRANOLOL [Suspect]
  19. ACETAMINOPHEN AND CODEINE PHOSPHATE [Suspect]
  20. INDOMETHACIN [Suspect]
  21. DOCUSATE SODIUM [Suspect]
  22. GINGER [Suspect]
  23. PYRIDOXINE HCL [Suspect]
  24. RANITIDINE [Suspect]

REACTIONS (4)
  - PREGNANCY [None]
  - NAUSEA [None]
  - VOMITING [None]
  - NORMAL NEWBORN [None]
